FAERS Safety Report 5081679-0 (Version None)
Quarter: 2006Q3

REPORT INFORMATION
  Report Type: 
  Country: None (occurrence: None)
  Receive Date: 20060816
  Receipt Date: 20060811
  Transmission Date: 20061208
  Serious: Yes (Life-Threatening)
  Sender: FDA-Public Use
  Company Number: PHHO2006CL13333

PATIENT
  Age: 55 Year
  Sex: Female

DRUGS (5)
  1. PLAQUINOL TAB [Concomitant]
  2. OMEPRAZOLE [Concomitant]
  3. CALCIUM GLUCONATE [Concomitant]
  4. ALENDRONATE SODIUM [Concomitant]
  5. ZELMAC / HTF 919A [Suspect]
     Dosage: 6 MG, BID

REACTIONS (2)
  - PERITONITIS [None]
  - SURGERY [None]
